FAERS Safety Report 21811498 (Version 2)
Quarter: 2023Q1

REPORT INFORMATION
  Report Type: Spontaneous
  Country: US (occurrence: US)
  Receive Date: 20230103
  Receipt Date: 20230105
  Transmission Date: 20230418
  Serious: Yes (Hospitalization, Other)
  Sender: FDA-Public Use
  Company Number: US-MYLANLABS-2022M1148910

PATIENT
  Age: 92 Year
  Sex: Female
  Weight: 58.5 kg

DRUGS (11)
  1. SILDENAFIL [Suspect]
     Active Substance: SILDENAFIL
     Indication: Pulmonary arterial hypertension
     Dosage: UNK
     Route: 048
     Dates: start: 202212, end: 202212
  2. TADALAFIL [Suspect]
     Active Substance: TADALAFIL
     Indication: Pulmonary arterial hypertension
     Dosage: UNK
     Route: 065
  3. ADCIRCA [Suspect]
     Active Substance: TADALAFIL
     Indication: Pulmonary arterial hypertension
     Dosage: 20 MILLIGRAM, QD
     Route: 048
     Dates: start: 202202, end: 202212
  4. ADCIRCA [Suspect]
     Active Substance: TADALAFIL
     Dosage: UNK (STOPPED AND SWITCHED TO SILDENAFIL)
     Route: 048
     Dates: start: 202212, end: 202212
  5. ADCIRCA [Suspect]
     Active Substance: TADALAFIL
     Dosage: 40 MILLIGRAM (RESTART IN HOSPITAL)
     Route: 048
     Dates: start: 202212
  6. TYVASO [Suspect]
     Active Substance: TREPROSTINIL
     Indication: Pulmonary arterial hypertension
     Dosage: 72 MICROGRAM, QID (INHALATION GAS, 12 BREATHS)
     Dates: start: 2022, end: 202212
  7. TYVASO [Suspect]
     Active Substance: TREPROSTINIL
     Dosage: UNK
     Dates: start: 20221130
  8. TYVASO [Suspect]
     Active Substance: TREPROSTINIL
     Indication: Pulmonary arterial hypertension
     Dosage: UNK (TD300/A DEVICE AND TYVASO DPI INHALER)
     Dates: start: 202212
  9. AMLODIPINE [Concomitant]
     Active Substance: AMLODIPINE BESYLATE
     Dosage: UNK
     Route: 065
  10. ELIQUIS [Concomitant]
     Active Substance: APIXABAN
     Dosage: UNK
     Route: 048
  11. LETAIRIS [Concomitant]
     Active Substance: AMBRISENTAN
     Dosage: UNK
     Route: 048

REACTIONS (9)
  - Pneumonia [Unknown]
  - Cardiac failure congestive [Unknown]
  - Hypervolaemia [Unknown]
  - Dyspnoea [Unknown]
  - Respiratory tract congestion [Unknown]
  - Hypernatraemia [Unknown]
  - Renal disorder [Unknown]
  - Therapeutic response decreased [Unknown]
  - Product availability issue [Unknown]

NARRATIVE: CASE EVENT DATE: 20221211
